FAERS Safety Report 21486151 (Version 2)
Quarter: 2022Q4

REPORT INFORMATION
  Report Type: Spontaneous
  Country: US (occurrence: US)
  Receive Date: 20221020
  Receipt Date: 20221025
  Transmission Date: 20230113
  Serious: Yes (Other)
  Sender: FDA-Public Use
  Company Number: US-PFIZER INC-202201237727

PATIENT
  Age: 90 Year
  Sex: Female
  Weight: 46.49 kg

DRUGS (3)
  1. PAXLOVID [Suspect]
     Active Substance: NIRMATRELVIR\RITONAVIR
     Indication: COVID-19 treatment
     Dosage: 3 DF, 2X/DAY [PF-07321332 300 MG]/[RITONAVIR 100 MG]
     Route: 048
     Dates: start: 20221005, end: 20221010
  2. ROSUVASTATIN [Suspect]
     Active Substance: ROSUVASTATIN
     Dosage: 20 MG, DAILY
     Route: 048
  3. IBUPROFEN [Suspect]
     Active Substance: IBUPROFEN
     Indication: Back pain
     Dosage: 200 MG, ONE TIME

REACTIONS (10)
  - Haemorrhage urinary tract [Recovered/Resolved]
  - Diarrhoea [Recovered/Resolved]
  - Urinary tract infection [Unknown]
  - Productive cough [Recovering/Resolving]
  - Bowel movement irregularity [Unknown]
  - Fatigue [Recovered/Resolved with Sequelae]
  - Dysphonia [Recovering/Resolving]
  - Anxiety [Recovering/Resolving]
  - Feeling cold [Recovering/Resolving]
  - Incorrect dose administered [Unknown]

NARRATIVE: CASE EVENT DATE: 20221001
